FAERS Safety Report 16742515 (Version 1)
Quarter: 2019Q3

REPORT INFORMATION
  Report Type: Spontaneous
  Country: FR (occurrence: FR)
  Receive Date: 20190826
  Receipt Date: 20190826
  Transmission Date: 20191005
  Serious: Yes (Hospitalization)
  Sender: FDA-Public Use
  Company Number: FR-JNJFOC-20190829216

PATIENT
  Age: 81 Year
  Sex: Female
  Weight: 95 kg

DRUGS (23)
  1. MORPHINE AGUETTANT [Suspect]
     Active Substance: MORPHINE HYDROCHLORIDE
     Indication: PAIN
     Dosage: 1 DF, AS NEEDED
     Route: 042
     Dates: start: 20190621
  2. DOLIPRANE [Suspect]
     Active Substance: ACETAMINOPHEN
     Indication: PAIN
     Dosage: 4000 MG, 1/DAY
     Route: 048
     Dates: start: 20190621, end: 20190702
  3. REMIFENTANIL MYLAN [Suspect]
     Active Substance: REMIFENTANIL
     Indication: ANAESTHESIA
     Dosage: 169 MCG, ONCE
     Route: 042
     Dates: start: 20190621, end: 20190621
  4. CEFAZOLINE PANPHARMA [Suspect]
     Active Substance: CEFAZOLIN SODIUM
     Indication: ANTI-INFECTIVE THERAPY
     Dosage: 4 G, ONCE
     Route: 042
     Dates: start: 20190621, end: 20190621
  5. DEXAMETHASONE. [Suspect]
     Active Substance: DEXAMETHASONE
     Indication: HYPERSENSITIVITY
     Dosage: 4 MG, ONCE
     Route: 042
     Dates: start: 20190621, end: 20190621
  6. LASILIX FAIBLE [Concomitant]
     Active Substance: FUROSEMIDE
     Indication: CARDIAC FAILURE
     Dosage: 20 MG, 1/DAY
     Route: 048
  7. ALPRAZOLAM. [Suspect]
     Active Substance: ALPRAZOLAM
     Indication: ANXIETY
     Dosage: 0.25 MG, 1/DAY
     Route: 048
     Dates: start: 20190620, end: 20190702
  8. NEFOPAM MYLAN [Suspect]
     Active Substance: NEFOPAM
     Indication: PAIN
     Dosage: 20 MG, ONCE
     Route: 042
     Dates: start: 20190621, end: 20190621
  9. LOVENOX [Suspect]
     Active Substance: ENOXAPARIN SODIUM
     Indication: THROMBOSIS
     Dosage: 2000 IU, 1/DAY
     Route: 058
     Dates: start: 20190620, end: 20190702
  10. HEMIGOXINE NATIVELLE [Concomitant]
     Active Substance: DIGOXIN
     Indication: CARDIAC FAILURE
     Dosage: 0.13 MG, 1/DAY
     Route: 048
     Dates: end: 20190702
  11. ONDANSETRON HYDROCHLORIDE. [Suspect]
     Active Substance: ONDANSETRON HYDROCHLORIDE
     Indication: NAUSEA
     Dosage: 4 MG, AS NEEDED
     Route: 042
     Dates: start: 20190621, end: 20190622
  12. TRAMADOL HYDROCHLORIDE. [Suspect]
     Active Substance: TRAMADOL HYDROCHLORIDE
     Indication: PAIN
     Dosage: 50 MG, 4/DAY
     Route: 048
     Dates: start: 20190621, end: 20190702
  13. FLAMMAZINE [Suspect]
     Active Substance: SILVER SULFADIAZINE
     Indication: INFECTION
     Dosage: 2 DF, 1/DAY
     Route: 003
     Dates: start: 20190627, end: 20190702
  14. ATRACURIUM BESILATE [Suspect]
     Active Substance: ATRACURIUM BESYLATE
     Indication: ANAESTHESIA
     Dosage: 25 MG, ONCE
     Route: 065
     Dates: start: 20190621, end: 20190621
  15. ACTISKENAN [Suspect]
     Active Substance: MORPHINE SULFATE
     Indication: PAIN
     Dosage: 5 MG, AS NEEDED
     Route: 048
     Dates: start: 20190621, end: 20190702
  16. PROPOFOL FRESENIUS [Suspect]
     Active Substance: PROPOFOL
     Indication: ANAESTHESIA
     Dosage: 150 MG, ONCE
     Route: 042
     Dates: start: 20190621, end: 20190621
  17. PANTOPRAZOLE SODIUM SESQUIHYDRATE [Concomitant]
     Active Substance: PANTOPRAZOLE SODIUM
     Indication: PEPTIC ULCER
     Dosage: 40 MG, 1/DAY
     Route: 048
  18. TRAMADOL HYDROCHLORIDE. [Suspect]
     Active Substance: TRAMADOL HYDROCHLORIDE
     Indication: PAIN
     Dosage: 100 MG, ONCE
     Route: 042
     Dates: start: 20190621, end: 20190621
  19. PIPERACILLIN AND TAZOBACTAM [Suspect]
     Active Substance: PIPERACILLIN SODIUM\TAZOBACTAM SODIUM
     Indication: INFECTION
     Dosage: 2 DF, 1/DAY
     Route: 042
     Dates: start: 20190629, end: 20190702
  20. GENTAMICINE PANPHARMA [Suspect]
     Active Substance: GENTAMICIN
     Indication: INFECTION
     Dosage: 240 MG, 1/DAY
     Route: 030
     Dates: start: 20190621, end: 20190628
  21. VANCOMYCIN HYDROCHLORIDE. [Suspect]
     Active Substance: VANCOMYCIN HYDROCHLORIDE
     Indication: INFECTION
     Dosage: 2000 MG, 1/DAY
     Route: 042
     Dates: start: 20190621, end: 20190628
  22. PERFALGAN [Suspect]
     Active Substance: ACETAMINOPHEN
     Indication: PAIN
     Dosage: 1000 MG, ONCE
     Route: 042
     Dates: start: 20190621, end: 20190621
  23. ALDACTONE [Concomitant]
     Active Substance: SPIRONOLACTONE
     Indication: CARDIAC FAILURE
     Dosage: 25 MG, 1/DAY
     Route: 048
     Dates: end: 20190702

REACTIONS (2)
  - Drug intolerance [Unknown]
  - Stevens-Johnson syndrome [Recovering/Resolving]

NARRATIVE: CASE EVENT DATE: 20190630
